FAERS Safety Report 4443637-6 (Version None)
Quarter: 2004Q3

REPORT INFORMATION
  Report Type: 
  Country: None (occurrence: None)
  Receive Date: 20040827
  Receipt Date: 20040816
  Transmission Date: 20050211
  Serious: Yes (Congenital Anomaly, Other)
  Sender: FDA-Public Use
  Company Number: B0057427A

PATIENT
  Sex: Female
  Weight: 2.8577 kg

DRUGS (6)
  1. RETROVIR [Suspect]
  2. RETROVIR [Suspect]
     Indication: ACQUIRED IMMUNODEFICIENCY SYNDROME
     Dosage: 600 MG TRANSPLACENTARY
     Route: 064
     Dates: start: 19950101
  3. RETROVIR [Suspect]
     Indication: ACQUIRED IMMUNODEFICIENCY SYNDROME
     Dosage: TRANSPLACENTARY
     Route: 064
  4. SEPTRA [Suspect]
     Dosage: TRANSPLACENTARY
     Route: 064
  5. ZALCITABINE (ZALCITABINE) [Suspect]
     Indication: ACQUIRED IMMUNODEFICIENCY SYNDROME
     Dosage: 2.25 MG TRANSPLACENTARY
     Route: 064
     Dates: start: 19950101
  6. FOLIC ACID [Concomitant]

REACTIONS (8)
  - BONE NEOPLASM [None]
  - CAESAREAN SECTION [None]
  - DRUG EXPOSURE DURING PREGNANCY [None]
  - HEMIVERTEBRA [None]
  - JOINT DISLOCATION [None]
  - MATERNAL DRUGS AFFECTING FOETUS [None]
  - PREGNANCY [None]
  - SPINE MALFORMATION [None]
